FAERS Safety Report 9459469 (Version 1)
Quarter: 2013Q3

REPORT INFORMATION
  Report Type: Spontaneous
  Country: JP (occurrence: JP)
  Receive Date: 20130815
  Receipt Date: 20130815
  Transmission Date: 20140515
  Serious: No
  Sender: FDA-Public Use
  Company Number: JP-JNJFOC-20130803599

PATIENT
  Sex: 0

DRUGS (4)
  1. DUROTEP MT [Suspect]
     Indication: CANCER PAIN
     Route: 062
  2. DUROTEP MT [Suspect]
     Indication: CANCER PAIN
     Dosage: 1.5 PATCHES
     Route: 062
     Dates: start: 20130805
  3. OPSO [Concomitant]
     Indication: CANCER PAIN
     Route: 048
  4. OPSO [Concomitant]
     Indication: CANCER PAIN
     Route: 048

REACTIONS (2)
  - Wrong technique in drug usage process [Unknown]
  - Drug prescribing error [Unknown]
